FAERS Safety Report 7570064-5 (Version None)
Quarter: 2011Q2

REPORT INFORMATION
  Report Type: 
  Country: None (occurrence: None)
  Receive Date: 20110622
  Receipt Date: 20110622
  Transmission Date: 20111010
  Serious: No
  Sender: FDA-Public Use
  Company Number: None

PATIENT

DRUGS (1)
  1. TUBERSOL [Suspect]
     Indication: TUBERCULIN TEST

REACTIONS (4)
  - INDURATION [None]
  - NONSPECIFIC REACTION [None]
  - PRURITUS [None]
  - SCRATCH [None]
